FAERS Safety Report 7916872-X (Version None)
Quarter: 2011Q4

REPORT INFORMATION
  Report Type: 
  Country: None (occurrence: None)
  Receive Date: 20111116
  Receipt Date: 20111111
  Transmission Date: 20120403
  Serious: Yes (Death, Hospitalization)
  Sender: FDA-Public Use
  Company Number: CH-ASTELLAS-2011US007581

PATIENT
  Sex: Female

DRUGS (1)
  1. TARCEVA [Suspect]
     Indication: METASTATIC BRONCHIAL CARCINOMA
     Dosage: UNK
     Route: 048
     Dates: start: 20111102, end: 20111111

REACTIONS (2)
  - CEREBRAL HAEMORRHAGE [None]
  - PULMONARY EMBOLISM [None]
